FAERS Safety Report 6212301-5 (Version None)
Quarter: 2009Q2

REPORT INFORMATION
  Report Type: 
  Country: None (occurrence: None)
  Receive Date: 20090529
  Receipt Date: 20090515
  Transmission Date: 20091009
  Serious: Yes (Hospitalization)
  Sender: FDA-Public Use
  Company Number: DAV-AE-NAP-09-001

PATIENT
  Age: 16 Month
  Sex: Male

DRUGS (3)
  1. NAPROXEN [Suspect]
     Indication: JUVENILE ARTHRITIS
     Dosage: 17 MG/KG/DAY
  2. FERROUS FUMARATE [Concomitant]
  3. INTRA-ARTICULAR INJECTION TRIAMCINOLONE HEXACETONIDE [Concomitant]

REACTIONS (14)
  - ANAEMIA [None]
  - ASCITES [None]
  - BLOOD IRON DECREASED [None]
  - CARDIAC MURMUR [None]
  - FAECES DISCOLOURED [None]
  - GENERALISED OEDEMA [None]
  - HEART RATE INCREASED [None]
  - HYPOALBUMINAEMIA [None]
  - OCCULT BLOOD POSITIVE [None]
  - PERIORBITAL OEDEMA [None]
  - PLATELET COUNT INCREASED [None]
  - RESPIRATORY RATE INCREASED [None]
  - SERUM FERRITIN DECREASED [None]
  - WHITE BLOOD CELL COUNT INCREASED [None]
